FAERS Safety Report 9279161 (Version 1)
Quarter: 2012Q4

REPORT INFORMATION
  Report Type: Spontaneous
  Country: US (occurrence: None)
  Receive Date: 20120925
  Receipt Date: 20120925
  Transmission Date: 20130627
  Serious: Yes (Other)
  Sender: FDA-Public Use
  Company Number: JPI-P-025021

PATIENT
  Age: 33 Year
  Sex: Female

DRUGS (4)
  1. XYREM (500 MILLIGRAM/MILLILITERS, SOLUTION)(SODIUM OXYBATE) [Suspect]
     Indication: CATAPLEXY
     Dosage: (2.25 gm, 2 in 1 D)
     Route: 048
     Dates: start: 20030124
  2. XYREM (500 MILLIGRAM/MILLILITERS, SOLUTION)(SODIUM OXYBATE) [Suspect]
     Indication: CATAPLEXY
     Route: 048
  3. XYREM (500 MILLIGRAM/MILLILITERS, SOLUTION)(SODIUM OXYBATE) [Suspect]
     Indication: CATAPLEXY
     Dosage: (4.5 gm, 2 in 1 D)
     Route: 048
     Dates: start: 20070912
  4. MVI [Concomitant]

REACTIONS (6)
  - Breast cancer [None]
  - Stress [None]
  - Poor quality sleep [None]
  - Abnormal dreams [None]
  - Pregnancy [None]
  - Maternal exposure during pregnancy [None]
